FAERS Safety Report 11621653 (Version 2)
Quarter: 2015Q4

REPORT INFORMATION
  Report Type: Spontaneous
  Country: GB (occurrence: US)
  Receive Date: 20151013
  Receipt Date: 20151130
  Transmission Date: 20160304
  Serious: No
  Sender: FDA-Public Use
  Company Number: GB-009507513-1510USA005380

PATIENT

DRUGS (1)
  1. CUBICIN [Suspect]
     Active Substance: DAPTOMYCIN
     Indication: ENDOCARDITIS
     Dosage: }10 MG/KG/DAY (MAXIMUN DOSE WAS 12 MG/KG/DAY)

REACTIONS (1)
  - Prescribed overdose [Unknown]
